FAERS Safety Report 19116907 (Version 1)
Quarter: 2021Q2

REPORT INFORMATION
  Report Type: Spontaneous
  Country: CN (occurrence: CN)
  Receive Date: 20210409
  Receipt Date: 20210409
  Transmission Date: 20210717
  Serious: Yes (Hospitalization, Other)
  Sender: FDA-Public Use
  Company Number: CN-ASTRAZENECA-2021A275551

PATIENT
  Age: 18503 Day
  Sex: Female
  Weight: 52 kg

DRUGS (1)
  1. OSIMERTINIB MESYLATE. [Suspect]
     Active Substance: OSIMERTINIB MESYLATE
     Indication: LUNG NEOPLASM MALIGNANT
     Route: 048
     Dates: start: 20200208, end: 20210325

REACTIONS (3)
  - Cardiac failure [Recovering/Resolving]
  - Hypothyroidism [Recovering/Resolving]
  - Pneumonia [Recovering/Resolving]

NARRATIVE: CASE EVENT DATE: 20210318
